FAERS Safety Report 21211850 (Version 1)
Quarter: 2022Q3

REPORT INFORMATION
  Report Type: Spontaneous
  Country: US (occurrence: None)
  Receive Date: 20220812
  Receipt Date: 20220812
  Transmission Date: 20221027
  Serious: No
  Sender: FDA-Public Use
  Company Number: None

PATIENT
  Age: 45 Year
  Sex: Male
  Weight: 85.73 kg

DRUGS (1)
  1. BUSPIRONE HYDROCHLORIDE [Suspect]
     Active Substance: BUSPIRONE HYDROCHLORIDE
     Indication: Anxiety
     Dosage: 10 MG BID PO?
     Route: 048
     Dates: start: 20200330, end: 20220506

REACTIONS (8)
  - Toothache [None]
  - Pain [None]
  - Gingival pain [None]
  - Dental paraesthesia [None]
  - Paraesthesia oral [None]
  - Hypoaesthesia oral [None]
  - Tooth disorder [None]
  - Hypoaesthesia [None]

NARRATIVE: CASE EVENT DATE: 20220407
